FAERS Safety Report 4289124-X (Version None)
Quarter: 2004Q1

REPORT INFORMATION
  Report Type: 
  Country: None (occurrence: None)
  Receive Date: 20040205
  Receipt Date: 20030119
  Transmission Date: 20041129
  Serious: Yes (Hospitalization, Other)
  Sender: FDA-Public Use
  Company Number: WAES 0304USA02145

PATIENT
  Age: 75 Year
  Sex: Female
  Weight: 49.8957 kg

DRUGS (15)
  1. VIOXX [Suspect]
     Indication: RHEUMATOID ARTHRITIS
     Dosage: 25 MG DAILY
     Dates: start: 20020101, end: 20030324
  2. BENICAR [Concomitant]
  3. CELEXA [Concomitant]
  4. LIPITOR [Concomitant]
  5. PERCOCET [Concomitant]
  6. PRILOSEC [Concomitant]
  7. PROVERA [Concomitant]
  8. REMICADE [Concomitant]
  9. VALTREX [Concomitant]
  10. VICODIN [Concomitant]
  11. ASPIRIN [Concomitant]
  12. FOLIC ACID [Concomitant]
  13. METHOTREXATE [Concomitant]
  14. PRE-THERAPY [Concomitant]
  15. PREDNISONE [Concomitant]

REACTIONS (13)
  - ABDOMINAL PAIN [None]
  - ABDOMINAL PAIN UPPER [None]
  - BILIARY COLIC [None]
  - BLOOD SODIUM DECREASED [None]
  - CHEST PAIN [None]
  - CHOLELITHIASIS [None]
  - DIVERTICULUM [None]
  - DYSPNOEA [None]
  - GASTRITIS [None]
  - HAEMATOCRIT DECREASED [None]
  - HAEMOGLOBIN DECREASED [None]
  - ILEUS [None]
  - RECTAL HAEMORRHAGE [None]
